FAERS Safety Report 12125042 (Version 1)
Quarter: 2016Q1

REPORT INFORMATION
  Report Type: Spontaneous
  Country: US (occurrence: None)
  Receive Date: 20160226
  Receipt Date: 20160226
  Transmission Date: 20160526
  Serious: No
  Sender: FDA-Public Use
  Company Number: None

PATIENT
  Age: 60 Year
  Sex: Female

DRUGS (8)
  1. REBIF [Suspect]
     Active Substance: INTERFERON BETA-1A
     Indication: MULTIPLE SCLEROSIS
     Route: 058
     Dates: start: 20140625
  2. VITAMIN E [Concomitant]
     Active Substance: .ALPHA.-TOCOPHEROL
  3. BACOLFEN [Concomitant]
     Active Substance: BACLOFEN
  4. VITAMIN B [Concomitant]
     Active Substance: VITAMIN B
  5. DIAZEPAM. [Concomitant]
     Active Substance: DIAZEPAM
  6. DIOVAN [Concomitant]
     Active Substance: VALSARTAN
  7. TEGRETOL [Concomitant]
     Active Substance: CARBAMAZEPINE
  8. VITAMIN D [Concomitant]
     Active Substance: CHOLECALCIFEROL

REACTIONS (1)
  - Fall [None]

NARRATIVE: CASE EVENT DATE: 201602
